FAERS Safety Report 6529916-7 (Version None)
Quarter: 2010Q1

REPORT INFORMATION
  Report Type: 
  Country: None (occurrence: None)
  Receive Date: 20100107
  Receipt Date: 20100104
  Transmission Date: 20100710
  Serious: Yes (Life-Threatening, Hospitalization)
  Sender: FDA-Public Use
  Company Number: B0621718A

PATIENT
  Sex: Male
  Weight: 87 kg

DRUGS (6)
  1. ARIXTRA [Suspect]
     Indication: DRUG USE FOR UNKNOWN INDICATION
     Dosage: 7.5MG PER DAY
     Route: 058
     Dates: start: 20091011, end: 20091012
  2. CORDARONE [Concomitant]
     Route: 065
  3. CORGARD [Concomitant]
     Route: 065
  4. LASILIX [Concomitant]
     Route: 065
  5. PREVISCAN [Concomitant]
     Route: 065
     Dates: end: 20091010
  6. TRIATEC [Concomitant]
     Route: 065

REACTIONS (6)
  - HAEMORRHAGE [None]
  - HYPOTENSION [None]
  - HYPOVOLAEMIC SHOCK [None]
  - INCISION SITE HAEMATOMA [None]
  - MYOCARDIAL INFARCTION [None]
  - OFF LABEL USE [None]
